FAERS Safety Report 24772897 (Version 2)
Quarter: 2025Q1

REPORT INFORMATION
  Report Type: Report from Study
  Country: US (occurrence: US)
  Receive Date: 20241225
  Receipt Date: 20250108
  Transmission Date: 20250409
  Serious: No
  Sender: ROCHE
  Company Number: US-ROCHE-10000160805

PATIENT
  Age: 44 Year
  Sex: Male

DRUGS (1)
  1. OCREVUS [Suspect]
     Active Substance: OCRELIZUMAB
     Indication: Relapsing multiple sclerosis
     Dosage: DATE OF SERVICE: 17/MAY/2023, 01/JUN/2021, 24/MAY/2023, 16/OCT/2023?DATE OF MOST RECENT INFUSION : 0
     Route: 065

REACTIONS (3)
  - Influenza [Unknown]
  - Multiple sclerosis [Unknown]
  - Off label use [Unknown]
